FAERS Safety Report 5166932-4 (Version None)
Quarter: 2006Q4

REPORT INFORMATION
  Report Type: 
  Country: None (occurrence: None)
  Receive Date: 20061207
  Receipt Date: 20061128
  Transmission Date: 20070319
  Serious: Yes (Hospitalization, Other)
  Sender: FDA-Public Use
  Company Number: US-ELI_LILLY_AND_COMPANY-US200611005286

PATIENT
  Age: 91 Year
  Sex: Female

DRUGS (6)
  1. HUMALOG [Suspect]
     Indication: DIABETES MELLITUS
     Dosage: UNK, UNKNOWN
     Dates: start: 20000101
  2. HUMALOG [Suspect]
     Dosage: UNK, UNKNOWN
  3. HUMULIN R [Suspect]
     Indication: DIABETES MELLITUS
     Dosage: UNK, UNKNOWN
     Dates: end: 20000101
  4. HUMULIN N [Suspect]
     Indication: DIABETES MELLITUS
     Dosage: UNK, UNKNOWN
     Dates: end: 20000101
  5. NOVOLOG [Concomitant]
     Indication: DIABETES MELLITUS
     Dosage: UNK, UNKNOWN
     Dates: end: 20000101
  6. NOVOLIN R [Concomitant]
     Indication: DIABETES MELLITUS
     Dosage: UNK, UNKNOWN
     Dates: end: 20000101

REACTIONS (9)
  - BLOOD GLUCOSE DECREASED [None]
  - COMA [None]
  - DECREASED APPETITE [None]
  - DECUBITUS ULCER [None]
  - DEMENTIA [None]
  - GANGRENE [None]
  - HIP FRACTURE [None]
  - IMPAIRED HEALING [None]
  - LEG AMPUTATION [None]
